FAERS Safety Report 8789496 (Version 1)
Quarter: 2012Q4

REPORT INFORMATION
  Report Type: 
  Country: US (occurrence: None)
  Receive Date: 20120906
  Receipt Date: 20120906
  Transmission Date: 20130627
  Serious: Yes (Death)
  Sender: FDA-Public Use
  Company Number: 2012CT000014

PATIENT
  Age: 33 Year
  Sex: Female

DRUGS (12)
  1. KORLYM [Suspect]
     Route: 042
     Dates: start: 20120427, end: 20120709
  2. ATIVAN [Concomitant]
  3. ALDACTONE [Concomitant]
  4. REGLAN [Concomitant]
  5. OMEPRAZOLE [Concomitant]
  6. ZOFRAN [Concomitant]
  7. ZANTAC [Concomitant]
  8. VANCOMYCIN [Concomitant]
  9. AMILORIDE [Concomitant]
  10. SPIRONOLACTONE [Concomitant]
  11. METYRAPONE [Concomitant]
  12. HYDROCORTIZONE [Concomitant]

REACTIONS (8)
  - Small cell carcinoma of the cervix [None]
  - Nausea [None]
  - Vomiting [None]
  - Hypokalaemia [None]
  - Abdominal mass [None]
  - Metastases to bone [None]
  - Metastases to liver [None]
  - Metastases to central nervous system [None]
